FAERS Safety Report 16675281 (Version 1)
Quarter: 2019Q3

REPORT INFORMATION
  Report Type: Spontaneous
  Country: TW (occurrence: TW)
  Receive Date: 20190806
  Receipt Date: 20190806
  Transmission Date: 20191004
  Serious: Yes (Other)
  Sender: FDA-Public Use
  Company Number: PHHY2012TW144037

PATIENT
  Age: 4 Year
  Sex: Male

DRUGS (1)
  1. TRILEPTAL [Suspect]
     Active Substance: OXCARBAZEPINE
     Indication: PRODUCT USED FOR UNKNOWN INDICATION
     Dosage: UNK
     Route: 065

REACTIONS (5)
  - Skin lesion [Unknown]
  - Cardiac neoplasm unspecified [Unknown]
  - Neurological symptom [Unknown]
  - Disease progression [Unknown]
  - Astrocytoma, low grade [Unknown]

NARRATIVE: CASE EVENT DATE: 20120202
